FAERS Safety Report 4903083-5 (Version None)
Quarter: 2006Q1

REPORT INFORMATION
  Report Type: 
  Country: None (occurrence: None)
  Receive Date: 20060207
  Receipt Date: 20050711
  Transmission Date: 20060701
  Serious: Yes (Hospitalization, Other)
  Sender: FDA-Public Use
  Company Number: US-MERCK-0507USA01627

PATIENT
  Age: 42 Year
  Sex: Male
  Weight: 91 kg

DRUGS (6)
  1. VIOXX [Suspect]
     Indication: PAIN IN EXTREMITY
     Route: 065
     Dates: start: 20010628, end: 20010630
  2. VIOXX [Suspect]
     Route: 065
     Dates: start: 20010501, end: 20040901
  3. VIOXX [Suspect]
     Route: 048
     Dates: start: 20010701
  4. VIOXX [Suspect]
     Route: 065
     Dates: start: 20010628, end: 20010630
  5. VIOXX [Suspect]
     Route: 065
     Dates: start: 20010501, end: 20040901
  6. VIOXX [Suspect]
     Route: 048
     Dates: start: 20010701

REACTIONS (7)
  - ACUTE MYOCARDIAL INFARCTION [None]
  - ANGINA UNSTABLE [None]
  - CORONARY ARTERY DISEASE [None]
  - INTERVERTEBRAL DISC PROTRUSION [None]
  - NERVE COMPRESSION [None]
  - PAIN [None]
  - RASH PRURITIC [None]
